FAERS Safety Report 8334959-7 (Version None)
Quarter: 2012Q2

REPORT INFORMATION
  Report Type: 
  Country: None (occurrence: None)
  Receive Date: 20120503
  Receipt Date: 20120425
  Transmission Date: 20120825
  Serious: Yes (Other)
  Sender: FDA-Public Use
  Company Number: FR-ROCHE-1056948

PATIENT
  Sex: Male
  Weight: 82 kg

DRUGS (9)
  1. COTRIM [Concomitant]
     Indication: PROPHYLAXIS
     Dates: start: 20120213
  2. PHENOXYMETHYL PENICILLIN [Concomitant]
     Dosage: DAILY DOSE: 2 MUI
     Dates: start: 20120213
  3. MABTHERA [Suspect]
     Dosage: LAST DOSE PRIOR TO SAE: 16/APR/2012
     Route: 042
     Dates: start: 20120220
  4. DARBEPOETIN ALFA [Concomitant]
     Indication: ANAEMIA
     Dates: start: 20120213
  5. ACETAMINOPHEN [Concomitant]
     Indication: PELVIC PAIN
     Dates: start: 20120319, end: 20120319
  6. VALACICLOVIR [Concomitant]
     Indication: PROPHYLAXIS
     Dates: start: 20120213
  7. PHENOXYMETHYL PENICILLIN [Concomitant]
     Dosage: TDD: 2 MUI
     Dates: start: 20120213
  8. MABTHERA [Suspect]
     Indication: B-CELL LYMPHOMA
     Dosage: LAST DOSE PRIOR TO SAE: 16/APR/2012
     Route: 042
     Dates: start: 20060111, end: 20061110
  9. MABTHERA [Suspect]
     Dosage: LAST DOSE PRIOR TO SAE: 16/APR/2012
     Route: 058
     Dates: start: 20120319

REACTIONS (2)
  - INFUSION RELATED REACTION [None]
  - TREMOR [None]
